FAERS Safety Report 7931290 (Version 3)
Quarter: 2013Q1

REPORT INFORMATION
  Report Type: Report from Study
  Country: JP (occurrence: JP)
  Receive Date: 20110505
  Receipt Date: 20130121
  Transmission Date: 20140127
  Serious: Yes (Hospitalization, Other)
  Sender: FDA-Public Use
  Company Number: JP-GENZYME-THYM-1002085

PATIENT
  Age: 15 Year
  Sex: Female
  Weight: 55 kg

DRUGS (59)
  1. THYMOGLOBULIN [Suspect]
     Indication: APLASTIC ANAEMIA
     Dosage: 190 MG, QD
     Route: 042
     Dates: start: 20090714, end: 20090718
  2. THYMOGLOBULIN [Suspect]
     Indication: BONE MARROW CONDITIONING REGIMEN
     Dosage: 69 MG, QD
     Route: 042
     Dates: start: 20100716, end: 20100719
  3. FLUDARA [Suspect]
     Indication: APLASTIC ANAEMIA
     Dosage: UNK
     Route: 065
     Dates: start: 20100712, end: 20100715
  4. CICLOSPORIN [Concomitant]
     Indication: PROPHYLAXIS AGAINST GRAFT VERSUS HOST DISEASE
     Dosage: UNK
     Route: 065
     Dates: start: 20100922, end: 20101027
  5. CICLOSPORIN [Concomitant]
     Dosage: UNK
     Route: 065
     Dates: start: 20101124, end: 20101214
  6. CICLOSPORIN [Concomitant]
     Dosage: UNK
     Route: 065
     Dates: start: 20101202, end: 20101202
  7. CICLOSPORIN [Concomitant]
     Dosage: UNK
     Route: 065
     Dates: start: 20100720, end: 20101215
  8. CICLOSPORIN [Concomitant]
     Dosage: UNK
     Route: 065
     Dates: start: 20101026, end: 20101124
  9. CYCLOPHOSPHAMIDE [Concomitant]
     Indication: APLASTIC ANAEMIA
     Dosage: UNK
     Route: 065
     Dates: start: 20100712, end: 20100715
  10. FREEZE DRIED SULFONATED HUMAN [Concomitant]
     Indication: INFECTION PROPHYLAXIS
     Dosage: UNK
     Route: 065
     Dates: start: 20100712, end: 20100714
  11. FREEZE DRIED SULFONATED HUMAN [Concomitant]
     Dosage: UNK
     Route: 065
     Dates: start: 20100722, end: 20100722
  12. FREEZE DRIED SULFONATED HUMAN [Concomitant]
     Dosage: UNK
     Route: 065
     Dates: start: 20100729, end: 20100729
  13. FREEZE DRIED SULFONATED HUMAN [Concomitant]
     Dosage: UNK
     Route: 065
     Dates: start: 20100805, end: 20100805
  14. FREEZE DRIED SULFONATED HUMAN [Concomitant]
     Dosage: UNK
     Route: 065
     Dates: start: 20100807, end: 20100808
  15. FREEZE DRIED SULFONATED HUMAN [Concomitant]
     Dosage: UNK
     Route: 065
     Dates: start: 20100812, end: 20100812
  16. FREEZE DRIED SULFONATED HUMAN [Concomitant]
     Dosage: UNK
     Route: 065
     Dates: start: 20100819, end: 20100821
  17. FREEZE DRIED SULFONATED HUMAN [Concomitant]
     Dosage: UNK
     Route: 065
     Dates: start: 20100826, end: 20100826
  18. FREEZE DRIED SULFONATED HUMAN [Concomitant]
     Dosage: UNK
     Route: 065
     Dates: start: 20100901, end: 20100902
  19. FREEZE DRIED SULFONATED HUMAN [Concomitant]
     Dosage: UNK
     Route: 065
     Dates: start: 20100908, end: 20100909
  20. FREEZE DRIED SULFONATED HUMAN [Concomitant]
     Dosage: UNK
     Route: 065
     Dates: start: 20100912, end: 20100914
  21. FREEZE DRIED SULFONATED HUMAN [Concomitant]
     Dosage: UNK
     Route: 065
     Dates: start: 20101016, end: 20101017
  22. FREEZE DRIED SULFONATED HUMAN [Concomitant]
     Dosage: UNK
     Route: 065
     Dates: start: 20101023, end: 20101024
  23. FREEZE DRIED SULFONATED HUMAN [Concomitant]
     Dosage: UNK
     Route: 065
     Dates: start: 20101030, end: 20101031
  24. FREEZE DRIED SULFONATED HUMAN [Concomitant]
     Dosage: UNK
     Route: 065
     Dates: start: 20101106, end: 20101106
  25. FREEZE DRIED SULFONATED HUMAN [Concomitant]
     Dosage: UNK
     Route: 065
     Dates: start: 20101113, end: 20101113
  26. FREEZE DRIED SULFONATED HUMAN [Concomitant]
     Dosage: UNK
     Route: 065
     Dates: start: 20101215, end: 20101215
  27. FREEZE DRIED SULFONATED HUMAN [Concomitant]
     Dosage: UNK
     Route: 065
  28. CEFPIROME SULFATE [Concomitant]
     Indication: INFECTION PROPHYLAXIS
     Dosage: UNK
     Route: 065
     Dates: start: 20100712, end: 20100727
  29. CEFPIROME SULFATE [Concomitant]
     Dosage: UNK
     Route: 065
     Dates: start: 20101016, end: 20101024
  30. CEFPIROME SULFATE [Concomitant]
     Dosage: UNK
     Route: 065
     Dates: start: 20101114, end: 20101117
  31. CEFPIROME SULFATE [Concomitant]
     Dosage: UNK
     Route: 065
     Dates: start: 20101120, end: 20101123
  32. CEFPIROME SULFATE [Concomitant]
     Dosage: UNK
     Route: 065
     Dates: start: 20101210, end: 20101215
  33. CEFPIROME SULFATE [Concomitant]
     Dosage: UNK
     Route: 065
     Dates: start: 20100905, end: 20100917
  34. FOSFLUCONAZOLE [Concomitant]
     Indication: INFECTION PROPHYLAXIS
     Dosage: UNK
     Route: 065
     Dates: start: 20100712, end: 20100919
  35. FAMOTIDINE [Concomitant]
     Indication: PROPHYLAXIS AGAINST GASTROINTESTINAL ULCER
     Dosage: UNK
     Route: 065
     Dates: start: 20100716, end: 20100725
  36. FAMOTIDINE [Concomitant]
     Dosage: UNK
     Route: 065
     Dates: start: 20100812, end: 20100819
  37. FAMOTIDINE [Concomitant]
     Dosage: UNK
     Route: 065
     Dates: start: 20100825, end: 20100825
  38. FAMOTIDINE [Concomitant]
     Dosage: UNK
     Route: 065
     Dates: start: 20100902, end: 20100902
  39. FAMOTIDINE [Concomitant]
     Dosage: UNK
     Route: 065
     Dates: start: 20100908, end: 20100908
  40. FAMOTIDINE [Concomitant]
     Dosage: UNK
     Route: 065
     Dates: start: 20100926, end: 20100926
  41. FAMOTIDINE [Concomitant]
     Dosage: UNK
     Route: 065
     Dates: start: 20100928, end: 20101018
  42. FAMOTIDINE [Concomitant]
  43. METHOTREXATE [Concomitant]
     Indication: PROPHYLAXIS AGAINST GRAFT VERSUS HOST DISEASE
     Dosage: UNK
     Route: 065
     Dates: start: 20100722, end: 20100722
  44. METHOTREXATE [Concomitant]
     Dosage: UNK
     Route: 065
     Dates: start: 20100724, end: 20100724
  45. METHOTREXATE [Concomitant]
     Dosage: UNK
     Route: 065
     Dates: start: 20100727, end: 20100727
  46. METHOTREXATE [Concomitant]
     Dosage: UNK
     Route: 065
     Dates: start: 20100801, end: 20100801
  47. FILGRASTIM [Concomitant]
     Indication: NEUTROPHIL COUNT DECREASED
     Dosage: UNK
     Route: 065
     Dates: start: 20100726, end: 20100812
  48. FILGRASTIM [Concomitant]
     Dosage: UNK
     Route: 065
     Dates: start: 20100820, end: 20100820
  49. FILGRASTIM [Concomitant]
     Dosage: UNK
     Route: 065
     Dates: start: 20100827, end: 20100827
  50. FILGRASTIM [Concomitant]
     Dosage: UNK
     Route: 065
     Dates: start: 20100901, end: 20100902
  51. FILGRASTIM [Concomitant]
     Dosage: UNK
     Route: 065
     Dates: start: 20101026, end: 20101026
  52. MEROPENEM TRIHYDRATE [Concomitant]
     Indication: INFECTION PROPHYLAXIS
     Dosage: UNK
     Route: 065
     Dates: start: 20100727, end: 20100806
  53. MEROPENEM TRIHYDRATE [Concomitant]
     Dosage: UNK
     Route: 065
     Dates: start: 20100901, end: 20100904
  54. MINOCYCLINE HYDROCHLORIDE [Concomitant]
     Indication: INFECTION PROPHYLAXIS
     Dosage: UNK
     Route: 065
     Dates: start: 20100727, end: 20100806
  55. TEICOPLANIN [Concomitant]
     Indication: INFECTION PROPHYLAXIS
     Dosage: UNK
     Route: 065
     Dates: start: 20100806, end: 20100811
  56. CEFEPIME HYDROCHLORIDE [Concomitant]
     Indication: INFECTION PROPHYLAXIS
     Dosage: UNK
     Route: 065
     Dates: start: 20100806, end: 20100901
  57. CEFEPIME HYDROCHLORIDE [Concomitant]
     Dosage: UNK
     Route: 065
     Dates: start: 20101028, end: 20101101
  58. RED BLOOD CELLS, CONCENTRATED [Concomitant]
     Indication: APLASTIC ANAEMIA
     Dosage: UNK
     Route: 065
     Dates: start: 20100917, end: 20101027
  59. PLATELETS, CONCENTRATED [Concomitant]
     Dosage: UNK
     Route: 065
     Dates: start: 20100722, end: 20101026

REACTIONS (3)
  - Graft versus host disease in skin [Unknown]
  - Viral haemorrhagic cystitis [Recovered/Resolved]
  - Cytomegalovirus test positive [Recovered/Resolved]
